FAERS Safety Report 10757537 (Version 3)
Quarter: 2015Q2

REPORT INFORMATION
  Report Type: Spontaneous
  Country: US (occurrence: US)
  Receive Date: 20150203
  Receipt Date: 20150630
  Transmission Date: 20150821
  Serious: Yes (Hospitalization, Other)
  Sender: FDA-Public Use
  Company Number: US-BAYER-2015-014642

PATIENT
  Age: 23 Year
  Sex: Female

DRUGS (2)
  1. MIRENA [Suspect]
     Active Substance: LEVONORGESTREL
     Indication: CONTRACEPTION
     Dosage: 20 MCG/24HR, CONT
     Route: 015
     Dates: start: 20120926, end: 20140225
  2. DEPO-PROVERA [Concomitant]
     Active Substance: MEDROXYPROGESTERONE ACETATE

REACTIONS (12)
  - Abdominal adhesions [None]
  - Gastrointestinal pain [None]
  - Menorrhagia [None]
  - Uterine perforation [None]
  - Urinary tract infection [None]
  - Faeces discoloured [None]
  - Faeces soft [None]
  - Scar [None]
  - Uterine haemorrhage [None]
  - Abdominal pain [None]
  - Blood urine present [None]
  - Injury [None]

NARRATIVE: CASE EVENT DATE: 201305
